FAERS Safety Report 4934126-0 (Version None)
Quarter: 2006Q1

REPORT INFORMATION
  Report Type: 
  Country: None (occurrence: None)
  Receive Date: 20060303
  Receipt Date: 20060221
  Transmission Date: 20060701
  Serious: Yes (Other)
  Sender: FDA-Public Use
  Company Number: 2005171797

PATIENT
  Age: 6 Year
  Sex: Male

DRUGS (2)
  1. ZYVOX [Suspect]
     Indication: STAPHYLOCOCCAL OSTEOMYELITIS
     Dosage: 170 MG (2 IN 1 D)
  2. METRONIDAZOLE [Concomitant]

REACTIONS (6)
  - COLOUR VISION TESTS ABNORMAL [None]
  - OPTIC ATROPHY [None]
  - OPTIC NEUROPATHY [None]
  - PAPILLOEDEMA [None]
  - RETINOPATHY [None]
  - VISUAL ACUITY REDUCED [None]
